FAERS Safety Report 11236937 (Version 2)
Quarter: 2015Q3

REPORT INFORMATION
  Report Type: Report from Study
  Country: US (occurrence: US)
  Receive Date: 20150703
  Receipt Date: 20150930
  Transmission Date: 20151125
  Serious: No
  Sender: FDA-Public Use
  Company Number: PHEH2015US011074

PATIENT
  Sex: Male
  Weight: 87.53 kg

DRUGS (3)
  1. EXTAVIA [Suspect]
     Active Substance: INTERFERON BETA-1B
     Indication: MULTIPLE SCLEROSIS
     Dosage: 0.25 MG (1 ML), QOD
     Route: 058
     Dates: start: 20150517, end: 20150717
  2. VALIUM [Concomitant]
     Active Substance: DIAZEPAM
     Indication: PRODUCT USED FOR UNKNOWN INDICATION
     Dosage: 1 DF, PRIOR TO MRI
     Route: 048
  3. REBIF [Concomitant]
     Active Substance: INTERFERON BETA-1A
     Indication: PRODUCT USED FOR UNKNOWN INDICATION
     Dosage: 0.5 ML, (44 MCG TOTAL), THREE TIMES A WEEK
     Route: 058

REACTIONS (9)
  - Visual acuity reduced [Unknown]
  - Influenza like illness [Not Recovered/Not Resolved]
  - Myalgia [Unknown]
  - Vitamin D deficiency [Unknown]
  - Contusion [Unknown]
  - Pain in extremity [Unknown]
  - Fatigue [Unknown]
  - Pain [Recovering/Resolving]
  - Malaise [Unknown]
